FAERS Safety Report 5019777-X (Version None)
Quarter: 2006Q2

REPORT INFORMATION
  Report Type: 
  Country: None (occurrence: None)
  Receive Date: 20060601
  Receipt Date: 20060519
  Transmission Date: 20061013
  Serious: Yes (Life-Threatening, Hospitalization)
  Sender: FDA-Public Use
  Company Number: 2006068395

PATIENT
  Age: 83 Year
  Sex: Male

DRUGS (4)
  1. ESTRAMUSTINE PHOSPHATE SODIUM CAPSULE (ESTRAMUSTINE PHOSPHATE SODIUM) [Suspect]
     Indication: ILL-DEFINED DISORDER
     Dosage: ORAL
     Route: 048
     Dates: start: 20051101, end: 20060401
  2. ASPIRIN C (ACETYLSALICYLIC ACID, ASCORBIC ACID) [Concomitant]
  3. DILTIAZEM HYDROCHLORIDE [Concomitant]
  4. ISOSORBIDE DINITRATE [Concomitant]

REACTIONS (2)
  - PNEUMONIA [None]
  - PULMONARY ALVEOLAR HAEMORRHAGE [None]
